FAERS Safety Report 9342410 (Version 2)
Quarter: 2013Q2

REPORT INFORMATION
  Report Type: Spontaneous
  Country: ES (occurrence: ES)
  Receive Date: 20130611
  Receipt Date: 20130617
  Transmission Date: 20140414
  Serious: Yes (Hospitalization)
  Sender: FDA-Public Use
  Company Number: ES-009507513-1212ESP006299

PATIENT
  Age: 26 Year
  Sex: Female

DRUGS (1)
  1. IMPLANON NXT [Suspect]
     Indication: CONTRACEPTION
     Dosage: UNK
     Route: 058
     Dates: start: 20121130, end: 20121217

REACTIONS (20)
  - Fallopian tube cyst [Recovered/Resolved]
  - Ovarian cyst [Recovered/Resolved]
  - Ovarian cyst ruptured [Recovered/Resolved]
  - Pharyngeal inflammation [Recovered/Resolved]
  - Tracheobronchitis [Recovered/Resolved]
  - Asthmatic crisis [Recovered/Resolved]
  - Pyrexia [Recovered/Resolved]
  - Metrorrhagia [Recovered/Resolved]
  - Acne [Recovered/Resolved]
  - Withdrawal bleed [Recovered/Resolved]
  - Abdominal pain upper [Recovered/Resolved]
  - Weight decreased [Unknown]
  - Asthenia [Not Recovered/Not Resolved]
  - Metrorrhagia [Not Recovered/Not Resolved]
  - Menorrhagia [Not Recovered/Not Resolved]
  - Abdominal pain [Recovered/Resolved]
  - Anaemia [Not Recovered/Not Resolved]
  - Menorrhagia [Not Recovered/Not Resolved]
  - Adverse event [Unknown]
  - Abnormal withdrawal bleeding [Not Recovered/Not Resolved]
